FAERS Safety Report 18933378 (Version 1)
Quarter: 2021Q1

REPORT INFORMATION
  Report Type: Spontaneous
  Country: US (occurrence: US)
  Receive Date: 20210224
  Receipt Date: 20210224
  Transmission Date: 20210420
  Serious: Yes (Death, Disabling, Other)
  Sender: FDA-Public Use
  Company Number: US-SA-2021SA061934

PATIENT
  Sex: Male

DRUGS (1)
  1. GOLD BOND MEDICATED FOOT [Suspect]
     Active Substance: MENTHOL
     Dosage: UNK
     Dates: start: 1984, end: 2001

REACTIONS (8)
  - Occupational exposure to product [Fatal]
  - Anxiety [Fatal]
  - Disability [Fatal]
  - Mesothelioma [Fatal]
  - Pain [Fatal]
  - Exposure to chemical pollution [Fatal]
  - Loss of personal independence in daily activities [Fatal]
  - Injury [Fatal]
